FAERS Safety Report 7409729-4 (Version None)
Quarter: 2011Q2

REPORT INFORMATION
  Report Type: 
  Country: None (occurrence: None)
  Receive Date: 20110412
  Receipt Date: 20110405
  Transmission Date: 20111010
  Serious: Yes (Hospitalization)
  Sender: FDA-Public Use
  Company Number: FR-BAXTER-2011BH010029

PATIENT
  Age: 77 Year
  Sex: Female

DRUGS (11)
  1. ENDOXAN [Concomitant]
  2. IMUREL [Concomitant]
  3. IMMUNE GLOBULIN INTRAVENOUS (HUMAN) [Concomitant]
  4. CORTICOSTEROIDS [Concomitant]
  5. CARBIMAZOLE [Concomitant]
  6. CELLCEPT [Concomitant]
  7. MABTHERA [Concomitant]
  8. GAMMAGARD S/D [Suspect]
     Indication: PRODUCT USED FOR UNKNOWN INDICATION
     Route: 042
     Dates: start: 20110328, end: 20110328
  9. BACTRIM [Concomitant]
  10. IODINE (131 I) [Concomitant]
  11. TEGELINE [Concomitant]

REACTIONS (7)
  - HYPERTENSION [None]
  - TREMOR [None]
  - ANXIETY [None]
  - TACHYCARDIA [None]
  - PERIPHERAL COLDNESS [None]
  - ANTIBODY TEST POSITIVE [None]
  - VOMITING [None]
